FAERS Safety Report 4975195-1 (Version None)
Quarter: 2006Q2

REPORT INFORMATION
  Report Type: 
  Country: None (occurrence: None)
  Receive Date: 20060417
  Receipt Date: 20060417
  Transmission Date: 20061013
  Serious: Yes (Disabling)
  Sender: FDA-Public Use
  Company Number: None

PATIENT
  Age: 37 Year
  Sex: Male
  Weight: 149.2 kg

DRUGS (1)
  1. CLINDAMYCIN [Suspect]
     Indication: CELLULITIS
     Dosage: 300 MG   Q6H    PO
     Route: 048
     Dates: start: 20060323, end: 20060323

REACTIONS (2)
  - PRURITUS [None]
  - RASH [None]
